FAERS Safety Report 24906212 (Version 1)
Quarter: 2025Q1

REPORT INFORMATION
  Report Type: Spontaneous
  Country: US (occurrence: None)
  Receive Date: 20250130
  Receipt Date: 20250130
  Transmission Date: 20250409
  Serious: Yes (Other)
  Sender: FDA-CTU
  Company Number: None

PATIENT
  Age: 61 Year
  Sex: Male
  Weight: 93 kg

DRUGS (1)
  1. LEVETIRACETAM [Suspect]
     Active Substance: LEVETIRACETAM
     Indication: Epilepsy
     Dosage: FREQUENCY : DAILY;?
     Dates: start: 20190408, end: 20191213

REACTIONS (1)
  - Seizure [None]

NARRATIVE: CASE EVENT DATE: 20191101
